FAERS Safety Report 8954710 (Version 2)
Quarter: 2013Q1

REPORT INFORMATION
  Report Type: Spontaneous
  Country: US (occurrence: US)
  Receive Date: 20121207
  Receipt Date: 20130108
  Transmission Date: 20140127
  Serious: No
  Sender: FDA-Public Use
  Company Number: US-ASTRAZENECA-2012SE88021

PATIENT
  Age: 74 Year
  Sex: Female
  Weight: 70.8 kg

DRUGS (14)
  1. SYMBICORT PMDI [Suspect]
     Indication: ASTHMA
     Dosage: 160 MCG,2 PUFFS TWO TIMES A DAY
     Route: 055
  2. SYMBICORT PMDI [Suspect]
     Indication: ASBESTOSIS
     Dosage: 160 MCG,2 PUFFS TWO TIMES A DAY
     Route: 055
  3. MICARDIS [Suspect]
     Indication: HYPERTENSION
     Route: 048
  4. HCTZ [Concomitant]
     Indication: HYPERTENSION
     Route: 048
     Dates: start: 2002
  5. KLONOPIN [Concomitant]
     Indication: ANXIETY
     Route: 048
     Dates: start: 1997
  6. LEXAPRO [Concomitant]
     Indication: DEPRESSION
     Route: 048
     Dates: start: 2010
  7. ZYRTEC [Concomitant]
     Indication: MULTIPLE ALLERGIES
     Dosage: GENERIC
     Route: 048
  8. METFORMIN [Concomitant]
     Indication: DIABETES MELLITUS
     Route: 048
  9. B-COMPLEX [Concomitant]
     Route: 048
  10. ALBUTEROL [Concomitant]
     Indication: PROPHYLAXIS AGAINST BRONCHOSPASM
     Dosage: INHALE,PRN
  11. NASALCROM [Concomitant]
     Indication: RHINORRHOEA
     Dosage: PRN
     Route: 045
  12. FLUTICASONE [Concomitant]
     Indication: NASAL CONGESTION
     Dosage: 2 PUFFS,BID
     Route: 045
  13. POTASSIUM [Concomitant]
     Indication: BLOOD POTASSIUM DECREASED
     Dosage: DAILY
     Route: 048
  14. LIPITOR [Concomitant]
     Indication: BLOOD CHOLESTEROL ABNORMAL
     Route: 048

REACTIONS (6)
  - Diabetes mellitus [Unknown]
  - Hypoacusis [Not Recovered/Not Resolved]
  - Vitamin D deficiency [Unknown]
  - Dysphonia [Unknown]
  - Blood potassium decreased [Unknown]
  - Cough [Unknown]
